FAERS Safety Report 6119312-9 (Version None)
Quarter: 2009Q1

REPORT INFORMATION
  Report Type: 
  Country: None (occurrence: None)
  Receive Date: 20090316
  Receipt Date: 20090306
  Transmission Date: 20090719
  Serious: Yes (Other)
  Sender: FDA-Public Use
  Company Number: PHEH2009US02389

PATIENT
  Sex: Female

DRUGS (10)
  1. RECLAST [Suspect]
  2. CELEBREX [Concomitant]
  3. ALLEGRA D 24 HOUR [Concomitant]
  4. PREVACID [Concomitant]
     Dosage: 30 UNK, UNK
  5. METANX [Concomitant]
  6. HYDROCODONE [Concomitant]
  7. VIVELLE-DOT [Concomitant]
  8. VITAMIN D [Concomitant]
  9. CALCIUM [Concomitant]
  10. PREVESET 30 [Concomitant]

REACTIONS (4)
  - CHEST DISCOMFORT [None]
  - CHOKING SENSATION [None]
  - PANIC ATTACK [None]
  - THROAT TIGHTNESS [None]
